FAERS Safety Report 18094623 (Version 1)
Quarter: 2020Q3

REPORT INFORMATION
  Report Type: Report from Study
  Country: DE (occurrence: DE)
  Receive Date: 20200731
  Receipt Date: 20200731
  Transmission Date: 20201103
  Serious: Yes (Death, Hospitalization, Other)
  Sender: FDA-Public Use
  Company Number: DE-BEH-2020119787

PATIENT
  Age: 79 Year
  Sex: Female
  Weight: 51 kg

DRUGS (10)
  1. PRIVIGEN [Suspect]
     Active Substance: HUMAN IMMUNOGLOBULIN G
     Indication: PANCYTOPENIA
     Dosage: 20 GRAM, TOT
     Route: 042
     Dates: start: 20200407, end: 20200407
  2. IMBRUVICA [Concomitant]
     Active Substance: IBRUTINIB
  3. MCP [Concomitant]
     Active Substance: METOCLOPRAMIDE HYDROCHLORIDE
  4. LAXOBERAL [Concomitant]
     Active Substance: SODIUM PICOSULFATE
     Dosage: UNK, PRN
  5. PRIVIGEN [Suspect]
     Active Substance: HUMAN IMMUNOGLOBULIN G
     Indication: SECONDARY IMMUNODEFICIENCY
     Dosage: 20 GRAM, TOT
     Route: 042
     Dates: start: 20200213, end: 20200213
  6. PRIVIGEN [Suspect]
     Active Substance: HUMAN IMMUNOGLOBULIN G
     Indication: INFECTION
     Dosage: 20 GRAM, TOT
     Route: 042
     Dates: start: 20200304, end: 20200304
  7. VALSARTAN. [Concomitant]
     Active Substance: VALSARTAN
  8. PRIVIGEN [Suspect]
     Active Substance: HUMAN IMMUNOGLOBULIN G
     Indication: CHRONIC LYMPHOCYTIC LEUKAEMIA
     Dosage: 20 GRAM, TOT
     Route: 042
     Dates: start: 20200123, end: 20200123
  9. PRIVIGEN [Suspect]
     Active Substance: HUMAN IMMUNOGLOBULIN G
     Indication: HUMORAL IMMUNE DEFECT
     Dosage: 20 GRAM, TOT
     Route: 042
     Dates: start: 20200518, end: 20200518
  10. METOPROLOL. [Concomitant]
     Active Substance: METOPROLOL

REACTIONS (8)
  - Pleomorphic malignant fibrous histiocytoma [Fatal]
  - Bronchopulmonary aspergillosis [Unknown]
  - Basal cell carcinoma [Fatal]
  - Palliative care [Unknown]
  - General physical health deterioration [Unknown]
  - Squamous cell carcinoma [Fatal]
  - General physical health deterioration [Unknown]
  - Infectious pleural effusion [Unknown]

NARRATIVE: CASE EVENT DATE: 202005
